FAERS Safety Report 8718433 (Version 2)
Quarter: 2013Q4

REPORT INFORMATION
  Report Type: Spontaneous
  Country: US (occurrence: US)
  Receive Date: 20120810
  Receipt Date: 20131101
  Transmission Date: 20140711
  Serious: No
  Sender: FDA-Public Use
  Company Number: US-009507513-1208USA004479

PATIENT
  Age: 13 Year
  Sex: Male

DRUGS (3)
  1. CLARITIN [Suspect]
     Indication: HYPERSENSITIVITY
     Dosage: 10 MG, ONCE
     Route: 048
     Dates: start: 20120731
  2. CLARITIN [Suspect]
     Dosage: 10 MG, ONCE
     Route: 048
     Dates: start: 20120731
  3. CLARITIN [Suspect]
     Dosage: 10 MG, ONCE
     Route: 048
     Dates: start: 20120731

REACTIONS (2)
  - Overdose [Unknown]
  - Drug ineffective [Unknown]
